FAERS Safety Report 5877331-1 (Version None)
Quarter: 2008Q3

REPORT INFORMATION
  Report Type: 
  Country: None (occurrence: None)
  Receive Date: 20080908
  Receipt Date: 20080901
  Transmission Date: 20090109
  Serious: Yes (Life-Threatening, Hospitalization, Other)
  Sender: FDA-Public Use
  Company Number: DSA_31878_2008

PATIENT
  Age: 70 Year
  Sex: Male

DRUGS (12)
  1. ENALAPRIL MALEATE AND HYDROCHLOROTHIAZIDE [Suspect]
     Indication: HYPERTENSION
     Dosage: 20-12.5 MG DAILY ORAL
     Route: 048
     Dates: end: 20080510
  2. JANUVIA [Suspect]
     Indication: TYPE 2 DIABETES MELLITUS
     Dosage: 100 MG QD ORAL
     Route: 048
     Dates: start: 20080430, end: 20080510
  3. METFORMIN HCL [Suspect]
     Indication: TYPE 2 DIABETES MELLITUS
     Dosage: 1000 MG TID ORAL
     Route: 048
     Dates: end: 20080510
  4. ALLOPURINOL [Concomitant]
  5. ACEBUTOLOL [Concomitant]
  6. ASPIRIN [Concomitant]
  7. CLONAZEPAM [Concomitant]
  8. OMEPRAZOLE [Concomitant]
  9. PREDNISONE TAB [Concomitant]
  10. AMLODIPINE BESYLATE [Concomitant]
  11. ATORVASTATIN CALCIUM [Concomitant]
  12. CLOPIDOGREL BISULFATE [Concomitant]

REACTIONS (9)
  - ANAEMIA [None]
  - CONDITION AGGRAVATED [None]
  - DIABETES MELLITUS [None]
  - GAMMOPATHY [None]
  - HAEMODIALYSIS [None]
  - LACTIC ACIDOSIS [None]
  - MALAISE [None]
  - PROSTATIC SPECIFIC ANTIGEN INCREASED [None]
  - RENAL FAILURE ACUTE [None]
